FAERS Safety Report 9981469 (Version 1)
Quarter: 2014Q1

REPORT INFORMATION
  Report Type: Spontaneous
  Country: US (occurrence: None)
  Receive Date: 20140306
  Receipt Date: 20140306
  Transmission Date: 20141002
  Serious: No
  Sender: FDA-Public Use
  Company Number: None

PATIENT
  Age: 59 Year
  Sex: Female
  Weight: 57.61 kg

DRUGS (1)
  1. METOPROLOL SUCCINATE 25 MG [Suspect]
     Indication: HYPERTENSION
     Dosage: 25 MG/ 1 PILL ONCE DAILY TAKEN BY MOUTH
     Route: 048
     Dates: start: 20140115, end: 20140212

REACTIONS (3)
  - Malaise [None]
  - Hypertension [None]
  - Product quality issue [None]
